FAERS Safety Report 11050245 (Version 2)
Quarter: 2015Q3

REPORT INFORMATION
  Report Type: Report from Study
  Country: US (occurrence: US)
  Receive Date: 20150421
  Receipt Date: 20150724
  Transmission Date: 20151125
  Serious: Yes (Other)
  Sender: FDA-Public Use
  Company Number: US-AMGEN-USASP2014060079

PATIENT
  Age: 0 Day
  Sex: Male
  Weight: 3.18 kg

DRUGS (2)
  1. ENBREL [Suspect]
     Active Substance: ETANERCEPT
     Indication: EXPOSURE DURING PREGNANCY
     Dosage: 50 ML, QWK
     Route: 063
     Dates: start: 2009, end: 201410
  2. PRENATAL                           /00231801/ [Concomitant]
     Dosage: ONE DAILY
     Route: 048
     Dates: start: 201310, end: 201506

REACTIONS (11)
  - Eczema [Unknown]
  - Milk soy protein intolerance [Unknown]
  - Rash [Unknown]
  - Ear infection [Unknown]
  - Gastrointestinal disorder [Unknown]
  - Food allergy [Unknown]
  - Seborrhoeic dermatitis [Not Recovered/Not Resolved]
  - Skin disorder [Unknown]
  - Cough [Unknown]
  - Umbilical cord around neck [Unknown]
  - Exposure during breast feeding [Unknown]

NARRATIVE: CASE EVENT DATE: 20140603
